FAERS Safety Report 4847383-6 (Version None)
Quarter: 2005Q4

REPORT INFORMATION
  Report Type: 
  Country: None (occurrence: None)
  Receive Date: 20051205
  Receipt Date: 20051122
  Transmission Date: 20060501
  Serious: Yes (Other)
  Sender: FDA-Public Use
  Company Number: 2005160577

PATIENT
  Age: 63 Year
  Sex: Male

DRUGS (4)
  1. NEURONTIN [Suspect]
     Indication: NEURALGIA
     Dosage: 2000 MG (4 IN 1 D)
     Dates: start: 20050101
  2. POTASSIUM [Concomitant]
  3. BACLOFEN [Concomitant]
  4. LASIX [Concomitant]

REACTIONS (2)
  - OEDEMA PERIPHERAL [None]
  - POST PROCEDURAL COMPLICATION [None]
